FAERS Safety Report 10042466 (Version 2)
Quarter: 2014Q1

REPORT INFORMATION
  Report Type: Report from Study
  Country: US (occurrence: US)
  Receive Date: 20140327
  Receipt Date: 20140327
  Transmission Date: 20141002
  Serious: Yes (Hospitalization, Other)
  Sender: FDA-Public Use
  Company Number: US-ABBVIE-14P-163-1212029-00

PATIENT
  Age: 36 Year
  Sex: Male
  Weight: 62.65 kg

DRUGS (6)
  1. HUMIRA [Suspect]
     Indication: CROHN^S DISEASE
     Dates: start: 20120121, end: 20120121
  2. HUMIRA [Suspect]
  3. HUMIRA [Suspect]
     Dates: start: 201306, end: 201310
  4. TYSABRI [Concomitant]
     Indication: CROHN^S DISEASE
     Dates: start: 2012, end: 201306
  5. ANUSOL [Concomitant]
     Indication: RECTAL HAEMORRHAGE
  6. XANAX [Concomitant]
     Indication: ANXIETY

REACTIONS (5)
  - Gastrointestinal inflammation [Recovered/Resolved]
  - Intestinal ulcer [Recovered/Resolved]
  - Intestinal stenosis [Recovered/Resolved]
  - Small intestinal resection [Recovered/Resolved]
  - Drug ineffective [Not Recovered/Not Resolved]
